FAERS Safety Report 5834433-3 (Version None)
Quarter: 2008Q3

REPORT INFORMATION
  Report Type: 
  Country: None (occurrence: None)
  Receive Date: 20080801
  Receipt Date: 20080716
  Transmission Date: 20090109
  Serious: Yes (Hospitalization, Other)
  Sender: FDA-Public Use
  Company Number: 2008AL008333

PATIENT
  Age: 69 Year
  Sex: Male
  Weight: 79.3795 kg

DRUGS (1)
  1. DIGOXIN [Suspect]
     Indication: HEART RATE ABNORMAL
     Dosage: 0.125MG DAILY PO
     Route: 048
     Dates: start: 20080315, end: 20080412

REACTIONS (3)
  - CARDIAC FAILURE [None]
  - HEART RATE DECREASED [None]
  - PULMONARY OEDEMA [None]
